FAERS Safety Report 8825031 (Version 1)
Quarter: 2012Q4

REPORT INFORMATION
  Report Type: 
  Country: US (occurrence: US)
  Receive Date: 20121004
  Receipt Date: 20121004
  Transmission Date: 20130627
  Serious: No
  Sender: FDA-Public Use
  Company Number: US-ASTRAZENECA-2012SE75129

PATIENT
  Age: 76 Year
  Sex: Female
  Weight: 69.4 kg

DRUGS (2)
  1. SYMBICORT [Suspect]
     Indication: ASTHMA
     Dosage: 160/4.5 MG,TWO TIMES A DAY
     Route: 055
     Dates: start: 20120821
  2. SYMBICORT [Suspect]
     Indication: CHRONIC OBSTRUCTIVE PULMONARY DISEASE
     Dosage: 160/4.5 MG,TWO TIMES A DAY
     Route: 055
     Dates: start: 20120821

REACTIONS (4)
  - Vulvovaginal erythema [Unknown]
  - Vulvovaginal burning sensation [Unknown]
  - Headache [Unknown]
  - Oropharyngeal pain [Unknown]
